FAERS Safety Report 8572003-7 (Version None)
Quarter: 2012Q3

REPORT INFORMATION
  Report Type: 
  Country: None (occurrence: None)
  Receive Date: 20120806
  Receipt Date: 20120725
  Transmission Date: 20120928
  Serious: Yes (Hospitalization)
  Sender: FDA-Public Use
  Company Number: FR-BRISTOL-MYERS SQUIBB COMPANY-16806408

PATIENT
  Age: 80 Year
  Sex: Male

DRUGS (5)
  1. ALFUZOSIN HCL [Suspect]
     Indication: BENIGN PROSTATIC HYPERPLASIA
     Route: 048
     Dates: start: 20100901, end: 20120519
  2. IRBESARTAN AND HYDROCHLOROTHIAZIDE [Suspect]
     Route: 048
     Dates: start: 20080212, end: 20120519
  3. LERCANIDIPINE [Suspect]
     Route: 048
     Dates: start: 20100901, end: 20120519
  4. OXAZEPAM [Suspect]
     Indication: HYPERTENSION
     Route: 048
     Dates: start: 20100901, end: 20120519
  5. ATENOLOL [Suspect]
     Route: 048
     Dates: start: 20100901, end: 20120524

REACTIONS (6)
  - URINARY RETENTION [None]
  - RENAL FAILURE CHRONIC [None]
  - FALL [None]
  - RHABDOMYOLYSIS [None]
  - CONFUSIONAL STATE [None]
  - ORTHOSTATIC HYPOTENSION [None]
